FAERS Safety Report 12451672 (Version 1)
Quarter: 2016Q2

REPORT INFORMATION
  Report Type: Spontaneous
  Country: CA (occurrence: CA)
  Receive Date: 20160609
  Receipt Date: 20160609
  Transmission Date: 20160815
  Serious: Yes (Life-Threatening, Hospitalization, Other)
  Sender: FDA-Public Use
  Company Number: CA-ROXANE LABORATORIES, INC.-2016-RO-01038RO

PATIENT
  Age: 54 Year
  Sex: Female

DRUGS (3)
  1. CYCLOPHOSPHAMIDE. [Suspect]
     Active Substance: CYCLOPHOSPHAMIDE
     Indication: LUPUS NEPHRITIS
     Route: 065
     Dates: start: 2001
  2. AZATHIOPRINE. [Suspect]
     Active Substance: AZATHIOPRINE
     Indication: IMMUNOSUPPRESSANT DRUG THERAPY
     Dosage: 50 MG
     Route: 065
     Dates: start: 2001
  3. PREDNISONE TABLETS USP, 5MG [Suspect]
     Active Substance: PREDNISONE
     Indication: IMMUNOSUPPRESSANT DRUG THERAPY
     Dosage: 50 MG
     Route: 065

REACTIONS (5)
  - Cytomegalovirus chorioretinitis [Unknown]
  - Large intestine perforation [Unknown]
  - Cytomegalovirus infection [Unknown]
  - Venous thrombosis limb [Unknown]
  - Cytomegalovirus gastrointestinal infection [Unknown]
